FAERS Safety Report 10784447 (Version 1)
Quarter: 2015Q1

REPORT INFORMATION
  Report Type: Spontaneous
  Country: US (occurrence: None)
  Receive Date: 20150209
  Receipt Date: 20150209
  Transmission Date: 20150721
  Serious: Yes (Life-Threatening, Hospitalization, Other)
  Sender: FDA-Public Use
  Company Number: None

PATIENT
  Age: 11 Year
  Sex: Male
  Weight: 42.64 kg

DRUGS (1)
  1. TAMIFLU [Suspect]
     Active Substance: OSELTAMIVIR PHOSPHATE
     Indication: INFLUENZA
     Dosage: APPROX 2 DOSES (CAPSULES)
     Route: 048
     Dates: start: 20150205

REACTIONS (7)
  - Self injurious behaviour [None]
  - Mydriasis [None]
  - Abnormal behaviour [None]
  - Delirium [None]
  - Vomiting [None]
  - Speech disorder [None]
  - Heart rate increased [None]

NARRATIVE: CASE EVENT DATE: 20150205
